FAERS Safety Report 16724162 (Version 2)
Quarter: 2019Q3

REPORT INFORMATION
  Report Type: Report from Study
  Country: RO (occurrence: RO)
  Receive Date: 20190821
  Receipt Date: 20190829
  Transmission Date: 20191005
  Serious: Yes (Death, Hospitalization)
  Sender: FDA-Public Use
  Company Number: RO-AMERICAN REGENT INC-20191555

PATIENT
  Age: 73 Year
  Sex: Male
  Weight: 127.1 kg

DRUGS (15)
  1. SPIRONOLACTONA [Concomitant]
     Active Substance: SPIRONOLACTONE
     Indication: CARDIAC FAILURE
     Dosage: 25 MILLIGRAM, 1 IN 1D
     Route: 048
     Dates: start: 20190108
  2. LERCANIDIPINA [Concomitant]
     Active Substance: LERCANIDIPINE
     Indication: HYPERTENSION
     Dosage: 20 MILLIGRAM, 1 IN 1D
     Route: 048
     Dates: start: 20190110, end: 20190114
  3. FUROSEMID [Concomitant]
     Active Substance: FUROSEMIDE
     Dosage: 80 MILLIGRAM, (20 MG, 4 IN 1 D)
     Route: 042
     Dates: start: 20190110, end: 20190114
  4. FUROSEMID [Concomitant]
     Active Substance: FUROSEMIDE
     Dosage: 80 MILLIGRAM, (40 MG, 2 IN 1 D)
     Route: 048
     Dates: start: 20190115
  5. CARVEDILOL. [Concomitant]
     Active Substance: CARVEDILOL
     Indication: CARDIAC FAILURE
     Dosage: 6.25 MILLIGRAM, (3.125 MG , 2 IN 1 D)
     Route: 048
     Dates: start: 20180118
  6. CANDESARTAN. [Concomitant]
     Active Substance: CANDESARTAN
     Indication: HYPERTENSION
     Dosage: 16 MILLIGRAM, 1 IN 1 D
     Route: 048
     Dates: start: 20190109, end: 20190109
  7. FERINJECT [Suspect]
     Active Substance: FERRIC CARBOXYMALTOSE
     Indication: CARDIAC FAILURE ACUTE
     Dosage: 10 ML 17 MINUTES
     Dates: start: 20190118, end: 20190118
  8. THROMBOSTOP [Concomitant]
     Indication: ATRIAL FIBRILLATION
     Dosage: 2 MILLIGRAM, 1 IN 1D
     Route: 048
     Dates: start: 20190115
  9. ACID ACETYLSALICYCLIC [Concomitant]
     Indication: CARDIAC FAILURE
     Dosage: 100 MILLIGRAM, 1 IN 1D
     Route: 048
     Dates: start: 20190108, end: 20190114
  10. DIGOXINUM [Concomitant]
     Indication: CARDIAC FAILURE
     Dosage: 1 MILLIGRAM (0.25 MG, 4 IN 1 WK)
     Route: 048
     Dates: start: 20190118
  11. FERINJECT [Suspect]
     Active Substance: FERRIC CARBOXYMALTOSE
     Indication: IRON DEFICIENCY
     Dosage: 10 ML 5 MINUTES
     Dates: start: 20190305, end: 20190305
  12. FERINJECT [Suspect]
     Active Substance: FERRIC CARBOXYMALTOSE
     Dosage: 10 ML 5 MINUTES
     Dates: start: 20190416, end: 20190416
  13. FUROSEMID [Concomitant]
     Active Substance: FUROSEMIDE
     Dosage: 60 MILLIGRAM, (20 MG 3 IN 1D)
     Route: 042
     Dates: start: 20190108, end: 20190109
  14. LERCANIDIPINA [Concomitant]
     Active Substance: LERCANIDIPINE
     Dosage: 10 MILLIGRAM, 1 IN 1D
     Route: 048
     Dates: start: 20190115
  15. FUROSEMID [Concomitant]
     Active Substance: FUROSEMIDE
     Indication: CARDIAC FAILURE
     Dosage: 40 MILLIGRAM, 1 IN 1D
     Route: 042
     Dates: start: 20190108, end: 20190108

REACTIONS (1)
  - Femur fracture [Fatal]

NARRATIVE: CASE EVENT DATE: 20190618
